FAERS Safety Report 20743538 (Version 1)
Quarter: 2022Q2

REPORT INFORMATION
  Report Type: Report from Study
  Country: GB (occurrence: GB)
  Receive Date: 20220425
  Receipt Date: 20220425
  Transmission Date: 20220721
  Serious: Yes (Other)
  Sender: FDA-Public Use
  Company Number: GB-KYOWAKIRIN-2022BKK005617

PATIENT

DRUGS (1)
  1. CRYSVITA [Suspect]
     Active Substance: BUROSUMAB-TWZA
     Indication: Product used for unknown indication
     Dosage: 15 MG
     Route: 065

REACTIONS (3)
  - Postoperative wound infection [Recovering/Resolving]
  - Surgery [Recovering/Resolving]
  - Off label use [Not Recovered/Not Resolved]
